FAERS Safety Report 5128988-4 (Version None)
Quarter: 2006Q4

REPORT INFORMATION
  Report Type: 
  Country: None (occurrence: None)
  Receive Date: 20061011
  Receipt Date: 20060925
  Transmission Date: 20070319
  Serious: Yes (Other)
  Sender: FDA-Public Use
  Company Number: 2006-07-2064

PATIENT
  Age: 42 Year
  Sex: Female
  Weight: 87.9978 kg

DRUGS (10)
  1. PEG-INTRON [Suspect]
     Indication: HEPATITIS C
     Dosage: SC
     Route: 058
     Dates: start: 20060530
  2. REBETOL [Suspect]
     Indication: HEPATITIS C
     Dosage: PO
     Route: 048
     Dates: start: 20060530
  3. LITHIUM CARBONATE [Suspect]
     Indication: BIPOLAR DISORDER
     Dosage: 300 MG; PO
     Route: 048
  4. METHADONE HYDROCHLORIDE [Concomitant]
  5. PRILOSEC [Concomitant]
  6. SEROQUEL [Concomitant]
  7. SEROQUEL [Concomitant]
  8. WELLBUTRIN SR [Concomitant]
  9. DEMEROL [Concomitant]
  10. PREVACID [Concomitant]

REACTIONS (12)
  - ANXIETY [None]
  - CONFUSIONAL STATE [None]
  - DEHYDRATION [None]
  - DEPRESSION [None]
  - DYSGEUSIA [None]
  - HAEMATEMESIS [None]
  - HAEMOGLOBIN DECREASED [None]
  - MELAENA [None]
  - OESOPHAGITIS [None]
  - PANIC ATTACK [None]
  - PLATELET COUNT DECREASED [None]
  - WEIGHT DECREASED [None]
